FAERS Safety Report 8953915 (Version 3)
Quarter: 2013Q1

REPORT INFORMATION
  Report Type: Spontaneous
  Country: US (occurrence: US)
  Receive Date: 20121206
  Receipt Date: 20130318
  Transmission Date: 20140127
  Serious: No
  Sender: FDA-Public Use
  Company Number: US-009507513-1210USA002643

PATIENT
  Sex: Female
  Weight: 131.52 kg

DRUGS (2)
  1. ASMANEX TWISTHALER [Suspect]
     Indication: ASTHMA
     Dosage: 220 MICROGRAM  STANDARD DOSE OF 30 MDI
     Route: 055
     Dates: start: 20120925
  2. ASMANEX TWISTHALER [Suspect]
     Dosage: 220 MICROGRAM  STANDARD DOSE OF 30 MDI
     Route: 055
     Dates: start: 2012

REACTIONS (4)
  - Asthma [Recovered/Resolved]
  - Drug ineffective [Unknown]
  - Drug ineffective [Unknown]
  - Product quality issue [Unknown]
